FAERS Safety Report 8428543-4 (Version None)
Quarter: 2012Q2

REPORT INFORMATION
  Report Type: 
  Country: None (occurrence: None)
  Receive Date: 20120606
  Receipt Date: 20120606
  Transmission Date: 20120825
  Serious: Yes (Other)
  Sender: FDA-Public Use
  Company Number: None

PATIENT
  Age: 63 Year
  Sex: Female
  Weight: 63 kg

DRUGS (2)
  1. DOCETAXEL [Suspect]
     Indication: LUNG NEOPLASM MALIGNANT
     Dosage: 120 MG, Q3WIK, IV DRIP
     Route: 041
     Dates: start: 20120329, end: 20120601
  2. CARBOPLATIN [Suspect]
     Indication: LUNG NEOPLASM MALIGNANT
     Dosage: 585 MGH, Q3 WKS, IV DRIP
     Route: 041
     Dates: start: 20120329, end: 20120601

REACTIONS (4)
  - INFUSION SITE EXTRAVASATION [None]
  - INFUSION SITE IRRITATION [None]
  - INFUSION SITE REACTION [None]
  - THERMAL BURN [None]
